FAERS Safety Report 19036781 (Version 1)
Quarter: 2021Q1

REPORT INFORMATION
  Report Type: Spontaneous
  Country: GB (occurrence: GB)
  Receive Date: 20210322
  Receipt Date: 20210322
  Transmission Date: 20210420
  Serious: Yes (Other)
  Sender: FDA-Public Use
  Company Number: GB-TEVA-2021-GB-1890582

PATIENT
  Age: 31 Year
  Sex: Female
  Weight: 72.11 kg

DRUGS (7)
  1. IRON [Concomitant]
     Active Substance: IRON
  2. NAPROXEN. [Suspect]
     Active Substance: NAPROXEN
     Indication: NEURALGIA
     Dosage: 1000 MILLIGRAM DAILY;
     Route: 048
     Dates: start: 20210215
  3. VITAMIN C [Concomitant]
     Active Substance: ASCORBIC ACID
  4. ZINC. [Concomitant]
     Active Substance: ZINC
  5. LACTOBACILLUS ACIDOPHILUS [Concomitant]
     Active Substance: LACTOBACILLUS ACIDOPHILUS
  6. VITAMIN B12 [Concomitant]
     Active Substance: CYANOCOBALAMIN
  7. MAGNESIUM [Concomitant]
     Active Substance: MAGNESIUM

REACTIONS (3)
  - Headache [Not Recovered/Not Resolved]
  - Abdominal distension [Not Recovered/Not Resolved]
  - Feeling abnormal [Not Recovered/Not Resolved]

NARRATIVE: CASE EVENT DATE: 20210217
